FAERS Safety Report 5376332-X (Version None)
Quarter: 2007Q2

REPORT INFORMATION
  Report Type: 
  Country: None (occurrence: None)
  Receive Date: 20070628
  Receipt Date: 20070202
  Transmission Date: 20071010
  Serious: Yes (Other)
  Sender: FDA-Public Use
  Company Number: 152546USA

PATIENT
  Age: 40 Year
  Sex: Male

DRUGS (11)
  1. CISPLATIN [Suspect]
     Indication: BONE SARCOMA
     Dates: start: 20030101, end: 20040101
  2. DOCETAXEL [Suspect]
     Indication: LUNG CARCINOMA CELL TYPE UNSPECIFIED RECURRENT
     Dosage: (1 IN 1 WK), INTRAVENOUS (NOT OTHERWISE SPECIFIED)
     Route: 042
     Dates: start: 20060101
  3. DOCETAXEL [Suspect]
     Indication: METASTASES TO LUNG
     Dosage: (1 IN 1 WK), INTRAVENOUS (NOT OTHERWISE SPECIFIED)
     Route: 042
     Dates: start: 20060101
  4. GEMCITABINE HCL [Suspect]
     Indication: LUNG CARCINOMA CELL TYPE UNSPECIFIED RECURRENT
     Dates: start: 20060101
  5. GEMCITABINE HCL [Suspect]
     Indication: METASTASES TO LUNG
     Dates: start: 20060101
  6. IFOSFAMIDE [Suspect]
     Indication: BONE SARCOMA
     Dates: start: 20030101, end: 20040101
  7. HERBEL SUPPLEMENTS [Suspect]
  8. DOXORUBICIN [Suspect]
     Indication: BONE SARCOMA
     Dates: start: 20030101, end: 20040101
  9. OXYCODONE HCL [Concomitant]
  10. ACETAMINOPHEN [Concomitant]
  11. ZOLPIDEM TARTRATE [Concomitant]

REACTIONS (3)
  - DISEASE PROGRESSION [None]
  - RENAL FAILURE [None]
  - RENAL TUBULAR NECROSIS [None]
